FAERS Safety Report 5504674-3 (Version None)
Quarter: 2007Q4

REPORT INFORMATION
  Report Type: 
  Country: None (occurrence: None)
  Receive Date: 20071031
  Receipt Date: 20071017
  Transmission Date: 20080405
  Serious: Yes (Hospitalization)
  Sender: FDA-Public Use
  Company Number: 160865ISR

PATIENT
  Age: 55 Year
  Sex: Female

DRUGS (2)
  1. CITALOPRAM [Suspect]
     Indication: DEPRESSION
     Dosage: 20 MG (20 MG, 1 IN 1 D) ORAL
     Route: 048
     Dates: start: 20050701, end: 20051201
  2. IMIPRAMINE [Suspect]
     Dosage: 25 MG (25 MG, 1 IN 1 D)
     Dates: start: 20060509, end: 20060707

REACTIONS (5)
  - ANGLE CLOSURE GLAUCOMA [None]
  - HEADACHE [None]
  - MYDRIASIS [None]
  - PUPILLARY REFLEX IMPAIRED [None]
  - VISION BLURRED [None]
